FAERS Safety Report 8950239 (Version 2)
Quarter: 2013Q1

REPORT INFORMATION
  Report Type: Spontaneous
  Country: US (occurrence: US)
  Receive Date: 20121205
  Receipt Date: 20130214
  Transmission Date: 20140127
  Serious: Yes (Hospitalization)
  Sender: FDA-Public Use
  Company Number: US-ELI_LILLY_AND_COMPANY-US201207001506

PATIENT
  Sex: Female

DRUGS (3)
  1. FORTEO [Suspect]
     Indication: OSTEOPOROSIS
     Dosage: 20 UG, QD
     Route: 065
     Dates: start: 20120608
  2. FORTEO [Suspect]
     Dosage: 20 UG, QD
  3. FORTEO [Suspect]
     Dosage: 20 UG, QD
     Route: 065
     Dates: start: 20120608, end: 20130104

REACTIONS (7)
  - Bronchitis [Unknown]
  - Pneumonia [Unknown]
  - Injection site erythema [Unknown]
  - Muscle spasms [Unknown]
  - Nail disorder [Unknown]
  - Pruritus [Unknown]
  - Bone pain [Not Recovered/Not Resolved]
